FAERS Safety Report 20348066 (Version 3)
Quarter: 2022Q2

REPORT INFORMATION
  Report Type: Spontaneous
  Country: DE (occurrence: DE)
  Receive Date: 20220118
  Receipt Date: 20220408
  Transmission Date: 20220721
  Serious: Yes (Hospitalization, Other)
  Sender: FDA-Public Use
  Company Number: DE-BoehringerIngelheim-2022-BI-107869

PATIENT
  Age: 72 Year
  Sex: Female

DRUGS (2)
  1. JARDIANCE [Suspect]
     Active Substance: EMPAGLIFLOZIN
     Indication: Type 2 diabetes mellitus
     Dates: start: 202002, end: 202109
  2. ELIQUIS [Concomitant]
     Active Substance: APIXABAN
     Indication: Atrial fibrillation

REACTIONS (10)
  - Urinary tract infection [Unknown]
  - Hydronephrosis [Unknown]
  - Urosepsis [Recovering/Resolving]
  - Vulvovaginal mycotic infection [Unknown]
  - Nephrolithiasis [Unknown]
  - Pruritus [Unknown]
  - Pyelonephritis [Unknown]
  - Calculus bladder [Unknown]
  - Anaemia [Unknown]
  - Atrial fibrillation [Recovering/Resolving]

NARRATIVE: CASE EVENT DATE: 20200401
